FAERS Safety Report 6546747-2 (Version None)
Quarter: 2010Q1

REPORT INFORMATION
  Report Type: 
  Country: None (occurrence: None)
  Receive Date: 20100122
  Receipt Date: 20100113
  Transmission Date: 20100710
  Serious: Yes (Hospitalization)
  Sender: FDA-Public Use
  Company Number: JP-ASTRAZENECA-2005AP03804

PATIENT
  Age: 22646 Day
  Sex: Male
  Weight: 71 kg

DRUGS (13)
  1. IRESSA [Suspect]
     Indication: LUNG ADENOCARCINOMA STAGE III
     Route: 048
     Dates: start: 20041018, end: 20041111
  2. HYPEN [Concomitant]
     Indication: CANCER PAIN
     Route: 048
     Dates: start: 20041004, end: 20041014
  3. MYSLEE [Concomitant]
     Indication: INSOMNIA
     Route: 048
     Dates: start: 20041004, end: 20041227
  4. OXYCONTIN [Concomitant]
     Indication: CANCER PAIN
     Route: 048
     Dates: start: 20041004, end: 20041229
  5. OPSO [Concomitant]
     Indication: CANCER PAIN
     Route: 048
     Dates: start: 20041004, end: 20041229
  6. CYTOTEC [Concomitant]
     Indication: GASTROINTESTINAL DISORDER
     Route: 048
     Dates: start: 20041004, end: 20041229
  7. CODEINE PHOSPHATE [Concomitant]
     Indication: COUGH
     Route: 048
     Dates: start: 20041020, end: 20041229
  8. GASTER D [Concomitant]
     Indication: GASTROINTESTINAL DISORDER
     Route: 048
     Dates: start: 20041022, end: 20041229
  9. MAGLAX [Concomitant]
     Indication: CONSTIPATION
     Route: 048
     Dates: start: 20041026, end: 20041229
  10. NOVAMIN [Concomitant]
     Indication: GASTROINTESTINAL DISORDER
     Route: 048
     Dates: start: 20041026, end: 20041229
  11. ANPEC [Concomitant]
     Indication: HYPOAESTHESIA
     Route: 054
     Dates: start: 20041028, end: 20041229
  12. RIVOTRIL [Concomitant]
     Indication: HYPOAESTHESIA
     Route: 048
     Dates: start: 20041029, end: 20041229
  13. LAXOBERON [Concomitant]
     Indication: CONSTIPATION
     Dosage: 20 GGT DROPS AS REQUIRED
     Route: 048
     Dates: start: 20041101, end: 20041229

REACTIONS (7)
  - BLOOD PH INCREASED [None]
  - DYSPNOEA [None]
  - HEPATIC FUNCTION ABNORMAL [None]
  - INTERSTITIAL LUNG DISEASE [None]
  - LUNG NEOPLASM MALIGNANT [None]
  - MALIGNANT NEOPLASM PROGRESSION [None]
  - PNEUMONIA BACTERIAL [None]
